FAERS Safety Report 13480339 (Version 1)
Quarter: 2017Q2

REPORT INFORMATION
  Report Type: Spontaneous
  Country: AR (occurrence: AR)
  Receive Date: 20170425
  Receipt Date: 20170425
  Transmission Date: 20170830
  Serious: Yes (Other)
  Sender: FDA-Public Use
  Company Number: AR-PFIZER INC-2017174551

PATIENT
  Age: 72 Year
  Sex: Male

DRUGS (1)
  1. INLYTA [Suspect]
     Active Substance: AXITINIB
     Indication: RENAL CANCER
     Dosage: 5 MG, FROM MONDAY THROUGH FRIDAY
     Dates: start: 20160505

REACTIONS (3)
  - Hypertension [Unknown]
  - Muscle hypertrophy [Unknown]
  - Visual impairment [Unknown]

NARRATIVE: CASE EVENT DATE: 201609
